FAERS Safety Report 23258593 (Version 3)
Quarter: 2024Q1

REPORT INFORMATION
  Report Type: Spontaneous
  Country: US (occurrence: US)
  Receive Date: 20231204
  Receipt Date: 20240305
  Transmission Date: 20240410
  Serious: No
  Sender: FDA-Public Use
  Company Number: US-PFIZER INC-202300416403

PATIENT
  Age: 82 Year
  Sex: Male
  Weight: 52.16 kg

DRUGS (1)
  1. CEFTAZIDIME [Suspect]
     Active Substance: CEFTAZIDIME
     Indication: Pneumonia
     Dosage: 8MG BID/UNSURE OF THE DOSE 14 DAYS TWICE A DAY 2GRAMS IN 20ML INFUSE INTRAVENOUS BY IV PUSH
     Route: 042
     Dates: start: 202311, end: 202311

REACTIONS (5)
  - Therapeutic product effect incomplete [Unknown]
  - Decreased appetite [Unknown]
  - Aspergillus test positive [Unknown]
  - Bacterial test positive [Unknown]
  - Off label use [Unknown]
